FAERS Safety Report 24806054 (Version 3)
Quarter: 2025Q1

REPORT INFORMATION
  Report Type: Report from Study
  Country: CA (occurrence: CA)
  Receive Date: 20250103
  Receipt Date: 20250326
  Transmission Date: 20250409
  Serious: No
  Sender: BLUEPRINT MEDICINES
  Company Number: CA-Blueprint Medicines Corporation-2024-AER-00087

PATIENT
  Age: 70 Year
  Sex: Male

DRUGS (5)
  1. AVAPRITINIB [Suspect]
     Active Substance: AVAPRITINIB
     Indication: Advanced systemic mastocytosis
     Route: 048
     Dates: start: 20200407, end: 202412
  2. AVAPRITINIB [Suspect]
     Active Substance: AVAPRITINIB
     Route: 048
     Dates: start: 202412
  3. AVAPRITINIB [Suspect]
     Active Substance: AVAPRITINIB
     Route: 048
     Dates: start: 20241231
  4. AVAPRITINIB [Suspect]
     Active Substance: AVAPRITINIB
     Dosage: ALTERNATING BETWEEN 50 MG AND 100 MG DAILY
     Route: 048
     Dates: start: 202412
  5. AVAPRITINIB [Suspect]
     Active Substance: AVAPRITINIB
     Dosage: ALTERNATING BETWEEN 50 MG AND 100 MG DAILY
     Route: 048
     Dates: start: 202412

REACTIONS (4)
  - Drug intolerance [Unknown]
  - Abdominal distension [Not Recovered/Not Resolved]
  - Peripheral swelling [Not Recovered/Not Resolved]
  - Adverse event [Unknown]

NARRATIVE: CASE EVENT DATE: 20241201
